FAERS Safety Report 7721753-0 (Version None)
Quarter: 2011Q3

REPORT INFORMATION
  Report Type: 
  Country: None (occurrence: None)
  Receive Date: 20110831
  Receipt Date: 20110818
  Transmission Date: 20111222
  Serious: Yes (Other)
  Sender: FDA-Public Use
  Company Number: IE-US-EMD SERONO, INC.-7050586

PATIENT
  Sex: Male
  Weight: 62 kg

DRUGS (5)
  1. SAIZEN [Suspect]
     Indication: BODY HEIGHT BELOW NORMAL
  2. SAIZEN [Suspect]
     Indication: GROWTH HORMONE DEFICIENCY
     Dates: end: 20110101
  3. SAIZEN [Suspect]
     Indication: BONE DISORDER
  4. TESTOSTERONE PHENYL PROPIONATE INJ [Concomitant]
     Indication: DELAYED PUBERTY
     Route: 048
  5. SAIZEN [Suspect]
     Indication: GROWTH RETARDATION
     Route: 058
     Dates: start: 20090222, end: 20110101

REACTIONS (1)
  - INSULIN RESISTANCE [None]
